FAERS Safety Report 12419375 (Version 1)
Quarter: 2016Q2

REPORT INFORMATION
  Report Type: Spontaneous
  Country: US (occurrence: None)
  Receive Date: 20160527
  Receipt Date: 20160527
  Transmission Date: 20160815
  Serious: No
  Sender: FDA-Public Use
  Company Number: None

PATIENT
  Age: 49 Year
  Sex: Male
  Weight: 82.56 kg

DRUGS (1)
  1. LAMOTRIGINE (GENERIC FORM ONLY) [Suspect]
     Active Substance: LAMOTRIGINE
     Indication: GENERALISED TONIC-CLONIC SEIZURE
     Route: 048

REACTIONS (4)
  - Headache [None]
  - Dizziness [None]
  - Balance disorder [None]
  - Nausea [None]
